FAERS Safety Report 14854168 (Version 1)
Quarter: 2018Q2

REPORT INFORMATION
  Report Type: Spontaneous
  Country: ZA (occurrence: ZA)
  Receive Date: 20180507
  Receipt Date: 20180507
  Transmission Date: 20180711
  Serious: Yes (Hospitalization)
  Sender: FDA-Public Use
  Company Number: ZA-JNJFOC-20180503414

PATIENT
  Age: 37 Year
  Sex: Female
  Weight: 57 kg

DRUGS (13)
  1. RITONAVIR. [Concomitant]
     Active Substance: RITONAVIR
     Route: 065
  2. ISONIAZID. [Suspect]
     Active Substance: ISONIAZID
     Indication: TUBERCULOSIS
     Route: 065
     Dates: start: 20170814
  3. LEVOFLOXACIN. [Suspect]
     Active Substance: LEVOFLOXACIN
     Indication: TUBERCULOSIS
     Route: 065
     Dates: start: 20170814
  4. LINEZOLID. [Suspect]
     Active Substance: LINEZOLID
     Indication: TUBERCULOSIS
     Route: 065
     Dates: start: 20170814
  5. LAMIVUDINE. [Concomitant]
     Active Substance: LAMIVUDINE
     Route: 065
  6. SIRTURO [Suspect]
     Active Substance: BEDAQUILINE FUMARATE
     Indication: TUBERCULOSIS
     Route: 048
     Dates: start: 20170814
  7. DELAMANID [Suspect]
     Active Substance: DELAMANID
     Indication: TUBERCULOSIS
     Route: 065
     Dates: start: 20170814
  8. CLOFAZIMINE [Suspect]
     Active Substance: CLOFAZIMINE
     Indication: TUBERCULOSIS
     Route: 065
     Dates: start: 20170814
  9. AMINOSALICYLIC ACID [Suspect]
     Active Substance: AMINOSALICYLIC ACID
     Indication: TUBERCULOSIS
     Route: 065
     Dates: start: 20170814
  10. ABACAVIR. [Concomitant]
     Active Substance: ABACAVIR
     Route: 065
  11. ATAZANAVIR. [Concomitant]
     Active Substance: ATAZANAVIR SULFATE
     Route: 065
  12. PYRIDOXINE [Concomitant]
     Active Substance: PYRIDOXINE
     Route: 065
  13. FLUCONAZOLE. [Concomitant]
     Active Substance: FLUCONAZOLE
     Route: 065
     Dates: start: 201609

REACTIONS (1)
  - Seizure [Recovered/Resolved]

NARRATIVE: CASE EVENT DATE: 20180413
